FAERS Safety Report 9240095 (Version 1)
Quarter: 2013Q2

REPORT INFORMATION
  Report Type: Spontaneous
  Country: DE (occurrence: None)
  Receive Date: 20130417
  Receipt Date: 20130417
  Transmission Date: 20140414
  Serious: Yes (Other)
  Sender: FDA-Public Use
  Company Number: DE-1197600

PATIENT
  Age: 72 Year
  Sex: Male
  Weight: 69 kg

DRUGS (5)
  1. AZOPT [Suspect]
     Indication: GLAUCOMA
     Route: 047
     Dates: start: 20130306, end: 20130329
  2. VEXOL [Suspect]
     Indication: POSTOPERATIVE CARE
     Route: 047
     Dates: start: 20130311, end: 20130329
  3. VOLTAREN [Suspect]
     Indication: POSTOPERATIVE CARE
     Route: 047
     Dates: start: 20130311, end: 20130324
  4. ALPHAGAN [Suspect]
     Indication: GLAUCOMA
     Route: 047
     Dates: start: 20130311
  5. DIAMOX [Concomitant]

REACTIONS (5)
  - Punctate keratitis [None]
  - Eye injury [None]
  - Visual impairment [None]
  - Eye irritation [None]
  - Eye pain [None]
